FAERS Safety Report 20235637 (Version 1)
Quarter: 2021Q4

REPORT INFORMATION
  Report Type: Spontaneous
  Country: CA (occurrence: CA)
  Receive Date: 20211228
  Receipt Date: 20211228
  Transmission Date: 20220303
  Serious: Yes (Death, Other)
  Sender: FDA-Public Use
  Company Number: CA-AUROBINDO-AUR-APL-2021-052715

PATIENT
  Age: 24 Year
  Sex: Male

DRUGS (6)
  1. QUETIAPINE [Suspect]
     Active Substance: QUETIAPINE
     Indication: Insomnia
     Dosage: 100 MILLIGRAM AS REQUIRED
     Route: 065
  2. OLANZAPINE [Suspect]
     Active Substance: OLANZAPINE
     Indication: Psychotic symptom
     Dosage: 150 MILLIGRAM, ONCE A DAY
     Route: 065
  3. OLANZAPINE [Suspect]
     Active Substance: OLANZAPINE
     Dosage: UNK, ONCE A DAY
     Route: 065
  4. ABILIFY MAINTENA [Suspect]
     Active Substance: ARIPIPRAZOLE
     Indication: Psychotic symptom
     Dosage: 400 MILLIGRAM, ONE EVERY 1 MONTHS
     Route: 030
  5. ZUCLOPENTHIXOL [Suspect]
     Active Substance: ZUCLOPENTHIXOL
     Indication: Psychiatric decompensation
     Dosage: ONCE
     Route: 065
  6. LORAZEPAM [Concomitant]
     Active Substance: LORAZEPAM
     Indication: Product used for unknown indication
     Dosage: UNK
     Route: 065

REACTIONS (18)
  - Accidental death [Fatal]
  - Acute pulmonary oedema [Fatal]
  - Agitation [Fatal]
  - Antipsychotic drug level decreased [Fatal]
  - Anxiolytic therapy [Fatal]
  - Arrhythmia [Fatal]
  - Cardiac failure [Fatal]
  - Drug therapy enhancement [Fatal]
  - Iatrogenic injury [Fatal]
  - Inappropriate schedule of product administration [Fatal]
  - Multiple drug therapy [Fatal]
  - Off label use [Fatal]
  - Prescribed overdose [Fatal]
  - Paradoxical drug reaction [Fatal]
  - Product dose omission issue [Fatal]
  - Psychotic disorder [Fatal]
  - Therapeutic product effect incomplete [Fatal]
  - Ventricular arrhythmia [Fatal]
